FAERS Safety Report 18032574 (Version 1)
Quarter: 2020Q3

REPORT INFORMATION
  Report Type: Spontaneous
  Country: DE (occurrence: DE)
  Receive Date: 20200716
  Receipt Date: 20200716
  Transmission Date: 20201103
  Serious: Yes (Disabling)
  Sender: FDA-Public Use
  Company Number: DE-JNJFOC-20200711166

PATIENT
  Age: 20 Year
  Sex: Male

DRUGS (1)
  1. RISPERDAL [Suspect]
     Active Substance: RISPERIDONE
     Indication: PRODUCT USED FOR UNKNOWN INDICATION
     Dosage: DOSE BETWEEN 2 AND 4 MG/DAY
     Route: 048

REACTIONS (1)
  - Infertility [Unknown]
